FAERS Safety Report 6666336-9 (Version None)
Quarter: 2010Q1

REPORT INFORMATION
  Report Type: 
  Country: None (occurrence: None)
  Receive Date: 20100331
  Receipt Date: 20100317
  Transmission Date: 20100710
  Serious: Yes (Hospitalization)
  Sender: FDA-Public Use
  Company Number: 009098

PATIENT
  Sex: Male

DRUGS (1)
  1. CIMZIA [Suspect]
     Indication: CROHN'S DISEASE
     Dosage: (400MG SUBCUTANEOUS)
     Route: 058
     Dates: start: 20081211

REACTIONS (3)
  - FREQUENT BOWEL MOVEMENTS [None]
  - INSOMNIA [None]
  - STRANGULATED HERNIA REPAIR [None]
